FAERS Safety Report 17549965 (Version 2)
Quarter: 2020Q1

REPORT INFORMATION
  Report Type: Spontaneous
  Country: US (occurrence: US)
  Receive Date: 20200317
  Receipt Date: 20200327
  Transmission Date: 20200409
  Serious: No
  Sender: FDA-Public Use
  Company Number: US-PFIZER INC-2020112483

PATIENT
  Age: 77 Year
  Sex: Female
  Weight: 103 kg

DRUGS (2)
  1. CELEBREX [Suspect]
     Active Substance: CELECOXIB
     Indication: PAIN
     Dosage: 100 MG, 2X/DAY
  2. CELEBREX [Suspect]
     Active Substance: CELECOXIB
     Dosage: 100 MG, 3X/DAY
     Route: 048
     Dates: start: 20200210

REACTIONS (2)
  - Therapeutic product effect incomplete [Unknown]
  - Off label use [Unknown]

NARRATIVE: CASE EVENT DATE: 20200210
